FAERS Safety Report 13489011 (Version 1)
Quarter: 2017Q2

REPORT INFORMATION
  Report Type: Spontaneous
  Country: US (occurrence: US)
  Receive Date: 20170426
  Receipt Date: 20170426
  Transmission Date: 20170830
  Serious: Yes (Other)
  Sender: FDA-Public Use
  Company Number: None

PATIENT
  Age: 53 Year
  Sex: Female
  Weight: 99 kg

DRUGS (22)
  1. CETIRIZINE [Suspect]
     Active Substance: CETIRIZINE HYDROCHLORIDE
     Indication: MULTIPLE ALLERGIES
     Dosage: ?          QUANTITY:1 TABLET(S);?
     Route: 048
  2. ALBUTEROL INHALER [Concomitant]
     Active Substance: ALBUTEROL
  3. VITAMIN D3 [Concomitant]
     Active Substance: CHOLECALCIFEROL
  4. REFRESH OPTIVE [Concomitant]
     Active Substance: CARBOXYMETHYLCELLULOSE SODIUM\GLYCERIN
  5. AVENOVA I-LID CLEANSER [Concomitant]
  6. ADVAIR DISKUS [Concomitant]
     Active Substance: FLUTICASONE PROPIONATE\SALMETEROL XINAFOATE
  7. MONTELUKAST SOD [Concomitant]
     Active Substance: MONTELUKAST SODIUM
  8. MUCINEX [Concomitant]
     Active Substance: GUAIFENESIN
  9. K [Concomitant]
  10. CLEARLAX [Concomitant]
     Active Substance: POLYETHYLENE GLYCOL 3350
  11. ZADITOR EYE DROPS [Concomitant]
  12. OMEPRAZOLE DR [Concomitant]
     Active Substance: OMEPRAZOLE
  13. ARMOUR THYROID [Concomitant]
     Active Substance: THYROID, PORCINE
  14. LINZESS [Concomitant]
     Active Substance: LINACLOTIDE
  15. VITAMIN B12 [Concomitant]
     Active Substance: CYANOCOBALAMIN
  16. SODIUM CHLORIDE. [Concomitant]
     Active Substance: SODIUM CHLORIDE
  17. ALDACTONE [Concomitant]
     Active Substance: SPIRONOLACTONE
  18. NASONEX [Concomitant]
     Active Substance: MOMETASONE FUROATE
  19. CALCIUM [Concomitant]
     Active Substance: CALCIUM
  20. ASPIRIN. [Concomitant]
     Active Substance: ASPIRIN
  21. ALBUTEROL SULFATE. [Concomitant]
     Active Substance: ALBUTEROL SULFATE
  22. PRESERVISION EYE VITAMIN [Concomitant]

REACTIONS (2)
  - Pruritus generalised [None]
  - Loss of personal independence in daily activities [None]

NARRATIVE: CASE EVENT DATE: 20170422
